FAERS Safety Report 7835124-X (Version None)
Quarter: 2011Q4

REPORT INFORMATION
  Report Type: 
  Country: None (occurrence: None)
  Receive Date: 20111024
  Receipt Date: 20111011
  Transmission Date: 20120403
  Serious: Yes (Life-Threatening)
  Sender: FDA-Public Use
  Company Number: JP-ELI_LILLY_AND_COMPANY-JP201109005676

PATIENT
  Sex: Male
  Weight: 63.7 kg

DRUGS (13)
  1. ROHYPNOL [Concomitant]
     Indication: SCHIZOPHRENIA
     Dosage: 2 MG, QD
     Route: 048
     Dates: end: 20110913
  2. ZYPREXA [Suspect]
     Dosage: 10 MG, QD
     Route: 048
     Dates: start: 20110906, end: 20110912
  3. RISPERDAL [Concomitant]
     Indication: SCHIZOPHRENIA
     Dosage: 2 MG, TID
     Route: 048
     Dates: end: 20110905
  4. DEPROMEL [Concomitant]
     Indication: SCHIZOPHRENIA
     Dosage: 25 MG, TID
     Dates: end: 20110913
  5. PROMAZINE HYDROCHLORIDE [Concomitant]
     Indication: SCHIZOPHRENIA
     Dosage: 25 MG, QD
     Route: 048
     Dates: end: 20110913
  6. ZYPREXA [Suspect]
     Indication: SCHIZOPHRENIA
     Dosage: 5 MG, QD
     Route: 048
     Dates: end: 20110905
  7. SELBEX [Concomitant]
     Indication: GASTROINTESTINAL DISORDER
     Dosage: 50 MG, TID
     Route: 048
     Dates: end: 20110913
  8. LEXOTAN [Concomitant]
     Indication: SCHIZOPHRENIA
     Dosage: 5 MG, TID
     Route: 048
     Dates: end: 20110913
  9. SEROQUEL [Concomitant]
     Dosage: 200 MG, TID
     Route: 048
     Dates: start: 20110906, end: 20110912
  10. SEROQUEL [Concomitant]
     Indication: SCHIZOPHRENIA
     Dosage: 100 MG, TID
     Route: 048
     Dates: end: 20110905
  11. ARTANE [Concomitant]
     Indication: PROPHYLAXIS
     Dosage: 2 MG, TID
     Route: 048
     Dates: end: 20110913
  12. ALLOPURINOL [Concomitant]
     Indication: GOUT
     Dosage: 100 MG, TID
     Route: 048
     Dates: end: 20110912
  13. PROMETHAZINE HCL [Concomitant]
     Indication: PROPHYLAXIS
     Dosage: 25 MG, QD
     Route: 048
     Dates: end: 20110913

REACTIONS (3)
  - NEUTROPHIL COUNT DECREASED [None]
  - ENTEROBACTER SEPSIS [None]
  - DISSEMINATED INTRAVASCULAR COAGULATION [None]
